FAERS Safety Report 6525975-6 (Version None)
Quarter: 2009Q4

REPORT INFORMATION
  Report Type: 
  Country: None (occurrence: None)
  Receive Date: 20091222
  Receipt Date: 20091208
  Transmission Date: 20100525
  Serious: Yes (Hospitalization)
  Sender: FDA-Public Use
  Company Number: DSJ-2009-13866

PATIENT
  Age: 75 Year
  Sex: Male
  Weight: 82.2 kg

DRUGS (22)
  1. OLMESARTAN MEDOXOMIL [Suspect]
     Indication: ESSENTIAL HYPERTENSION
     Dosage: 10 MG (10 MG, 1 IN 1 D), PER ORAL; 20 MG (20 MG, 1 IN 1 D), PER ORAL
     Route: 048
     Dates: start: 20070301
  2. AMLODIPINE [Concomitant]
  3. BUFFERIN (ACETYLSALICYLIC ACID, ALUMINIUM GLYCINATE) (ACETYLSALICYLIC [Concomitant]
  4. BEZATOL SR (BEZAFIBRATE) (BEZAFIBRATE) [Concomitant]
  5. DAONIL (GLIBENCLAMIDE) (GLIBENCLAMIDE) [Concomitant]
  6. MARZULENE-S (LEVOGLUTAMIDE, SODIUM GUALENATE) (LEVOGLUTAMIDE, SODIUM G [Concomitant]
  7. AMLODIN OD (AMLODIPINE BESILATE) (AMLODIPINE BESILATE) [Concomitant]
  8. HERBESSER (DILTIAZEM HYDROCHLORIDE) (DILTIAZEM HYDROCHLORIDE) [Concomitant]
  9. SIGMART (NICORANDIL) (NICORANDIL) [Concomitant]
  10. CIBENOL (CIBENZOLINE SUCCINATE) (CIBENZOLINE SUCCINATE) [Concomitant]
  11. LAC-B (LACTOBACILLUS BIFIDUS, LYOPHILIZED) (LACTOBACILLUS BIFIDUS, LYO [Concomitant]
  12. NITOROL R (ISOSORBIDE DINITRATE) (CAPSULE) (ISOSORBIDE DINITRATE) [Concomitant]
  13. ALOSITOL (ALLOPURINOL) (ALLOPURINOL) [Concomitant]
  14. LIVALO [Concomitant]
  15. BASEN (VOGLIBOSE) (VOGLIBOSE) [Concomitant]
  16. MEDET (METFORMIN HYDROCHLORIDE) (METFORMIN HYDROCHLORIDE) [Concomitant]
  17. ASPIRIN [Concomitant]
  18. TAKEPRON OD (LANSOPRAZOLE) (LANSOPRAZOLE) [Concomitant]
  19. STARSIS (NATEGLINIDE) (NATEGLINIDE) [Concomitant]
  20. EPADEL S (ETHYL ICOSAPENTATE) (ETHYL ICOSAPENTATE) [Concomitant]
  21. ATELEC (CILNIDIPINE) (CILNIDIPINE) [Concomitant]
  22. LANTUS 300 (INSULIN GLARGINE) (INJECTION) (INSULIN GLARGINE) [Concomitant]

REACTIONS (2)
  - BLOOD GLUCOSE INCREASED [None]
  - TREATMENT NONCOMPLIANCE [None]
